FAERS Safety Report 9174266 (Version 2)
Quarter: 2013Q1

REPORT INFORMATION
  Report Type: Spontaneous
  Country: IT (occurrence: IT)
  Receive Date: 20130320
  Receipt Date: 20130326
  Transmission Date: 20140127
  Serious: Yes (Hospitalization)
  Sender: FDA-Public Use
  Company Number: IT-PFIZER INC-2013091054

PATIENT
  Age: 78 Year
  Sex: Female

DRUGS (13)
  1. MEDROL [Suspect]
     Dosage: 8 MG, DAILY
     Route: 048
     Dates: start: 20130101, end: 20130227
  2. SELEPARINA [Suspect]
     Indication: THROMBOSIS PROPHYLAXIS
     Dosage: 1 DOSAGE UNIT, ALTERNATE DAY
     Route: 058
     Dates: start: 20130101, end: 20130227
  3. CALCITRIOL [Concomitant]
     Route: 048
  4. RENVELA [Concomitant]
     Route: 048
  5. TORVAST [Concomitant]
     Route: 048
  6. TRIATEC [Concomitant]
     Route: 048
  7. PEPTAZOL [Concomitant]
     Route: 048
  8. ZOLOFT [Concomitant]
     Route: 048
  9. INDERAL [Concomitant]
     Route: 048
  10. CORDARONE [Concomitant]
     Route: 048
  11. KAYEXALATE [Concomitant]
     Route: 048
  12. CATAPRESAN [Concomitant]
     Route: 048
  13. TAVOR [Concomitant]
     Route: 048

REACTIONS (3)
  - Abdominal pain [Unknown]
  - Melaena [Unknown]
  - Presyncope [Unknown]
